FAERS Safety Report 24303486 (Version 1)
Quarter: 2024Q3

REPORT INFORMATION
  Report Type: Spontaneous
  Country: GB (occurrence: GB)
  Receive Date: 20240910
  Receipt Date: 20240910
  Transmission Date: 20241016
  Serious: Yes (Hospitalization)
  Sender: VIIV
  Company Number: GB-VIIV HEALTHCARE LIMITED-GB2024EME109617

PATIENT

DRUGS (4)
  1. CABOTEGRAVIR [Suspect]
     Active Substance: CABOTEGRAVIR
     Indication: Product used for unknown indication
     Dosage: UNK
     Route: 030
     Dates: start: 202306
  2. CABOTEGRAVIR [Suspect]
     Active Substance: CABOTEGRAVIR
  3. CABOTEGRAVIR [Suspect]
     Active Substance: CABOTEGRAVIR
  4. RILPIVIRINE [Suspect]
     Active Substance: RILPIVIRINE
     Indication: Product used for unknown indication
     Dosage: UNK
     Route: 030
     Dates: start: 202306

REACTIONS (7)
  - Musculoskeletal pain [Unknown]
  - Pain in extremity [Unknown]
  - Paraesthesia [Unknown]
  - Anxiety [Unknown]
  - Oedema [Unknown]
  - Injection site mass [Not Recovered/Not Resolved]
  - Injection site induration [Not Recovered/Not Resolved]
